FAERS Safety Report 10019343 (Version 1)
Quarter: 2014Q1

REPORT INFORMATION
  Report Type: Spontaneous
  Country: IT (occurrence: IT)
  Receive Date: 20140318
  Receipt Date: 20140318
  Transmission Date: 20141002
  Serious: Yes (Hospitalization, Other)
  Sender: FDA-Public Use
  Company Number: IT-WATSON-2014-04768

PATIENT
  Age: 54 Year
  Sex: Male

DRUGS (6)
  1. PREDNISONE (UNKNOWN) [Suspect]
     Indication: TYPE 2 LEPRA REACTION
     Dosage: 75 MG, UNKNOWN
     Route: 048
  2. PREDNISONE (UNKNOWN) [Suspect]
     Dosage: 50 UNK, UNK
     Route: 048
  3. THALIDOMIDE [Concomitant]
     Indication: TYPE 2 LEPRA REACTION
     Dosage: UNK
     Route: 065
  4. RIFAMPICIN [Concomitant]
     Indication: BORDERLINE LEPROSY
     Dosage: UNK, MONTTHLY
     Route: 065
  5. MINOCYCLINE [Concomitant]
     Indication: BORDERLINE LEPROSY
     Dosage: 100 MG, DAILY
     Route: 065
  6. MOXIFLOXACIN [Concomitant]
     Indication: BORDERLINE LEPROSY
     Dosage: 400 MG, DAILY
     Route: 065

REACTIONS (2)
  - Cellulitis [Recovered/Resolved]
  - Nocardiosis [Recovered/Resolved]
